FAERS Safety Report 21386147 (Version 3)
Quarter: 2022Q4

REPORT INFORMATION
  Report Type: Spontaneous
  Country: SE (occurrence: SE)
  Receive Date: 20220928
  Receipt Date: 20221004
  Transmission Date: 20230113
  Serious: Yes (Disabling)
  Sender: FDA-Public Use
  Company Number: SE-China IPSEN SC-2022-26821

PATIENT
  Sex: Female

DRUGS (2)
  1. DYSPORT [Suspect]
     Active Substance: ABOBOTULINUMTOXINA
     Indication: Migraine
     Dosage: NOT REPORTED
     Route: 065
     Dates: start: 20210428, end: 20210428
  2. DYSPORT [Suspect]
     Active Substance: ABOBOTULINUMTOXINA
     Indication: Off label use

REACTIONS (7)
  - Neuralgia [Unknown]
  - Facial asymmetry [Unknown]
  - Headache [Unknown]
  - Burning sensation [Unknown]
  - Burning sensation [Unknown]
  - Nerve injury [Unknown]
  - Off label use [Unknown]

NARRATIVE: CASE EVENT DATE: 20210101
